FAERS Safety Report 10241070 (Version 3)
Quarter: 2014Q3

REPORT INFORMATION
  Report Type: Spontaneous
  Country: JP (occurrence: JP)
  Receive Date: 20140617
  Receipt Date: 20140721
  Transmission Date: 20150326
  Serious: Yes (Other)
  Sender: FDA-Public Use
  Company Number: JP-ROCHE-1419009

PATIENT
  Age: 15 Year
  Sex: Male

DRUGS (5)
  1. PREDNISOLONE. [Concomitant]
     Active Substance: PREDNISOLONE
     Indication: SYSTEMIC INFLAMMATORY RESPONSE SYNDROME
     Dosage: DOSAGE IS UNCERTAIN.
     Route: 065
  2. PREDNISOLONE. [Concomitant]
     Active Substance: PREDNISOLONE
     Indication: SYSTEMIC INFLAMMATORY RESPONSE SYNDROME
     Dosage: IT IS A WEIGHT LOSS TO 25MG-8MG.
     Route: 065
  3. CYCLOPHOSPHAMIDE. [Concomitant]
     Active Substance: CYCLOPHOSPHAMIDE
     Indication: SYSTEMIC INFLAMMATORY RESPONSE SYNDROME
     Dosage: DRUG REPORTED AS: CYCLOPHOSPHAMIDE HYDRATE
     Route: 042
  4. METHYLPREDNISOLONE SODIUM SUCCINATE. [Concomitant]
     Active Substance: METHYLPREDNISOLONE SODIUM SUCCINATE
     Indication: SYSTEMIC INFLAMMATORY RESPONSE SYNDROME
     Dosage: DOSAGE IS UNCERTAIN.
     Route: 065
  5. ACTEMRA [Suspect]
     Active Substance: TOCILIZUMAB
     Indication: SYSTEMIC INFLAMMATORY RESPONSE SYNDROME
     Dosage: DOSAGE IS UNCERTAIN.
     Route: 065

REACTIONS (3)
  - Substance-induced psychotic disorder [Unknown]
  - Toxic epidermal necrolysis [Unknown]
  - Off label use [Unknown]
